FAERS Safety Report 10788729 (Version 1)
Quarter: 2015Q1

REPORT INFORMATION
  Report Type: Spontaneous
  Country: US (occurrence: None)
  Receive Date: 20150211
  Receipt Date: 20150211
  Transmission Date: 20150721
  Serious: Yes (Hospitalization)
  Sender: FDA-Public Use
  Company Number: None

PATIENT
  Age: 64 Year
  Sex: Male
  Weight: 82.56 kg

DRUGS (1)
  1. PYRIDOSTIGMINE [Suspect]
     Active Substance: PYRIDOSTIGMINE
     Indication: MYASTHENIA GRAVIS
     Route: 048
     Dates: start: 20150202, end: 20150209

REACTIONS (4)
  - Gastrointestinal haemorrhage [None]
  - Urinary retention [None]
  - Large intestine perforation [None]
  - Abdominal pain [None]

NARRATIVE: CASE EVENT DATE: 20150209
